FAERS Safety Report 10801309 (Version 3)
Quarter: 2015Q4

REPORT INFORMATION
  Report Type: Spontaneous
  Country: GB (occurrence: GB)
  Receive Date: 20150217
  Receipt Date: 20151001
  Transmission Date: 20160304
  Serious: Yes (Hospitalization)
  Sender: FDA-Public Use
  Company Number: PHFR2015GB001326

PATIENT
  Age: 40 Year
  Sex: Female

DRUGS (1)
  1. GILENYA [Suspect]
     Active Substance: FINGOLIMOD HYDROCHLORIDE
     Indication: PRODUCT USED FOR UNKNOWN INDICATION
     Route: 065
     Dates: start: 201408

REACTIONS (8)
  - Central nervous system lesion [Recovering/Resolving]
  - Brain oedema [Unknown]
  - Stress [Unknown]
  - Optic neuritis [Unknown]
  - Blindness unilateral [Recovered/Resolved]
  - Multiple sclerosis relapse [Unknown]
  - Ataxia [Unknown]
  - Tooth abscess [Unknown]

NARRATIVE: CASE EVENT DATE: 201412
